FAERS Safety Report 15589416 (Version 2)
Quarter: 2018Q4

REPORT INFORMATION
  Report Type: Report from Study
  Country: JP (occurrence: JP)
  Receive Date: 20181106
  Receipt Date: 20181225
  Transmission Date: 20190205
  Serious: Yes (Life-Threatening, Other)
  Sender: FDA-Public Use
  Company Number: JP-ROCHE-2165836

PATIENT
  Age: 78 Year
  Sex: Male
  Weight: 52 kg

DRUGS (10)
  1. ZYLORIC [Concomitant]
     Active Substance: ALLOPURINOL
     Dosage: DOSAGE IS UNCERTAIN.
     Route: 065
  2. DEXART [Suspect]
     Active Substance: DEXAMETHASONE SODIUM PHOSPHATE
     Route: 041
     Dates: start: 20180817, end: 20180821
  3. ATEZOLIZUMAB. [Suspect]
     Active Substance: ATEZOLIZUMAB
     Indication: NON-SMALL CELL LUNG CANCER
     Route: 041
     Dates: start: 20180625, end: 20180625
  4. DECADRON [Suspect]
     Active Substance: DEXAMETHASONE
     Indication: INTERSTITIAL LUNG DISEASE
     Dosage: DOSE INTERVAL UNCERTAINITY
     Route: 048
     Dates: start: 20180720, end: 20180809
  5. DEXART [Suspect]
     Active Substance: DEXAMETHASONE SODIUM PHOSPHATE
     Route: 041
     Dates: start: 20180810, end: 20180816
  6. DECADRON [Suspect]
     Active Substance: DEXAMETHASONE
     Dosage: DOSE INTERVAL UNCERTAINITY
     Route: 048
     Dates: start: 20180804
  7. ATEZOLIZUMAB. [Suspect]
     Active Substance: ATEZOLIZUMAB
     Indication: ADENOSQUAMOUS CELL LUNG CANCER
  8. DEXART [Suspect]
     Active Substance: DEXAMETHASONE SODIUM PHOSPHATE
     Indication: INTERSTITIAL LUNG DISEASE
     Dosage: LAST DOSE IN 2018
     Route: 065
     Dates: start: 20180718, end: 20180719
  9. BEZATOL SR [Concomitant]
     Active Substance: BEZAFIBRATE
     Dosage: DOSAGE IS UNCERTAIN.
     Route: 065
  10. PROTECADIN [Concomitant]
     Active Substance: LAFUTIDINE
     Dosage: DOSAGE IS UNCERTAIN.
     Route: 065

REACTIONS (3)
  - Restlessness [Unknown]
  - Acute lung injury [Recovered/Resolved with Sequelae]
  - Pulmonary cavitation [Unknown]

NARRATIVE: CASE EVENT DATE: 20180713
